FAERS Safety Report 7057140-0 (Version None)
Quarter: 2010Q4

REPORT INFORMATION
  Report Type: 
  Country: None (occurrence: None)
  Receive Date: 20101022
  Receipt Date: 20101011
  Transmission Date: 20110411
  Serious: Yes (Hospitalization, Other)
  Sender: FDA-Public Use
  Company Number: PHEH2006US11442

PATIENT
  Sex: Female
  Weight: 84.807 kg

DRUGS (27)
  1. AREDIA [Suspect]
     Indication: MULTIPLE MYELOMA
     Dosage: UNK
     Dates: end: 20060101
  2. ZOMETA [Suspect]
     Indication: MULTIPLE MYELOMA
  3. CODEINE [Suspect]
     Dosage: UNK
  4. BIOTIN [Suspect]
  5. AMOXICILLIN [Concomitant]
     Dosage: 500 MG, UNK
  6. ALTACE [Concomitant]
     Dosage: 10 MG, UNK
  7. HYDROCHLOROTHIAZIDE [Concomitant]
  8. EFFEXOR [Concomitant]
  9. CROCIN [Concomitant]
     Dosage: UNK
     Dates: start: 20070124
  10. ZESTRIL [Concomitant]
  11. ALPRAZOLAM [Concomitant]
  12. WARFARIN SODIUM [Concomitant]
  13. POTASSIUM CHLORIDE [Concomitant]
  14. CRESTOR [Concomitant]
  15. FUROSEMIDE [Concomitant]
  16. SYNTHROID [Concomitant]
  17. IMDUR [Concomitant]
  18. SELENIUM [Concomitant]
  19. MAGNESIUM [Concomitant]
  20. ZINC [Concomitant]
  21. CHROMIUM CHLORIDE [Concomitant]
  22. CAL-MAG [Concomitant]
  23. MULTI-VITAMINS [Concomitant]
  24. PREMARIN [Concomitant]
  25. ASPIRIN [Concomitant]
  26. XANAX [Concomitant]
  27. LASIX [Concomitant]

REACTIONS (64)
  - ABDOMINAL PAIN [None]
  - ANXIETY [None]
  - AORTIC STENOSIS [None]
  - AORTIC VALVE DISEASE [None]
  - ARTHRALGIA [None]
  - ARTHROPATHY [None]
  - ARTIFICIAL CROWN PROCEDURE [None]
  - ATRIAL FIBRILLATION [None]
  - ATRIOVENTRICULAR BLOCK [None]
  - BONE DISORDER [None]
  - BURSITIS [None]
  - CARDIAC FAILURE CONGESTIVE [None]
  - CARDIAC MURMUR [None]
  - CARDIAC OPERATION [None]
  - CHEST DISCOMFORT [None]
  - DECREASED INTEREST [None]
  - DEFORMITY [None]
  - DENTAL CARIES [None]
  - DRUG HYPERSENSITIVITY [None]
  - DRY EYE [None]
  - DYSPNOEA EXERTIONAL [None]
  - EJECTION FRACTION DECREASED [None]
  - ELECTROCARDIOGRAM QRS COMPLEX ABNORMAL [None]
  - ELECTROCARDIOGRAM T WAVE INVERSION [None]
  - EMOTIONAL DISTRESS [None]
  - ENDODONTIC PROCEDURE [None]
  - EXCESSIVE GRANULATION TISSUE [None]
  - EXOSTOSIS [None]
  - FLUID OVERLOAD [None]
  - GENERAL PHYSICAL HEALTH DETERIORATION [None]
  - HALLUCINATION [None]
  - HYPERCHOLESTEROLAEMIA [None]
  - HYPOPHAGIA [None]
  - INFECTION [None]
  - LEFT VENTRICULAR HYPERTROPHY [None]
  - LIFE EXPECTANCY SHORTENED [None]
  - MITRAL VALVE CALCIFICATION [None]
  - MOUTH ULCERATION [None]
  - NECK PAIN [None]
  - OCULAR HYPERAEMIA [None]
  - OEDEMA [None]
  - ORAL DISORDER [None]
  - ORAL FIBROMA [None]
  - OSTEITIS [None]
  - OSTEOARTHRITIS [None]
  - OSTEONECROSIS OF JAW [None]
  - PAIN [None]
  - PLEURAL EFFUSION [None]
  - PNEUMONIA [None]
  - PRIMARY SEQUESTRUM [None]
  - PYURIA [None]
  - RECTAL HAEMORRHAGE [None]
  - SWELLING [None]
  - SYNOVIAL CYST [None]
  - THYROID DISORDER [None]
  - TOOTH ABSCESS [None]
  - TOOTH EXTRACTION [None]
  - TOOTH FRACTURE [None]
  - TOOTHACHE [None]
  - TRICUSPID VALVE INCOMPETENCE [None]
  - TUMOUR EXCISION [None]
  - URTICARIA [None]
  - VENTRICULAR EXTRASYSTOLES [None]
  - VISUAL IMPAIRMENT [None]
